FAERS Safety Report 4775380-8 (Version None)
Quarter: 2005Q3

REPORT INFORMATION
  Report Type: 
  Country: None (occurrence: None)
  Receive Date: 20050914
  Receipt Date: 20050314
  Transmission Date: 20060218
  Serious: Yes (Disabling)
  Sender: FDA-Public Use
  Company Number: 163-20785-05030322

PATIENT
  Age: 71 Year
  Sex: Male

DRUGS (2)
  1. THALOMID [Suspect]
     Indication: CHRONIC MYELOID LEUKAEMIA
     Dosage: SEE IMAGE
     Route: 048
     Dates: start: 20031031, end: 20040801
  2. THALOMID [Suspect]
     Indication: CHRONIC MYELOID LEUKAEMIA
     Dosage: SEE IMAGE
     Route: 048
     Dates: start: 20040801, end: 20041015

REACTIONS (3)
  - HYPOAESTHESIA [None]
  - NEUROPATHY PERIPHERAL [None]
  - SENSORY DISTURBANCE [None]
